FAERS Safety Report 26049258 (Version 1)
Quarter: 2025Q4

REPORT INFORMATION
  Report Type: Spontaneous
  Country: EU (occurrence: EU)
  Receive Date: 20251115
  Receipt Date: 20251115
  Transmission Date: 20260119
  Serious: Yes (Death, Other)
  Sender: MACLEODS
  Company Number: EU-MACLEODS PHARMA-MAC2025056311

PATIENT

DRUGS (2)
  1. LIDOCAINE [Suspect]
     Active Substance: LIDOCAINE
     Indication: Local anaesthesia
     Dosage: 500 -1000 MG
     Route: 058
  2. EPINEPHRINE [Suspect]
     Active Substance: EPINEPHRINE
     Indication: Product used for unknown indication
     Route: 058

REACTIONS (14)
  - Local anaesthetic systemic toxicity [Fatal]
  - Overdose [Fatal]
  - Cardio-respiratory arrest [Fatal]
  - Contusion [Fatal]
  - Oedema [Fatal]
  - Pulmonary congestion [Fatal]
  - Arteriosclerosis coronary artery [Fatal]
  - Anaphylactic shock [Fatal]
  - Cyanosis [Fatal]
  - Myocardial necrosis [Fatal]
  - Myocardial fibrosis [Fatal]
  - Generalised tonic-clonic seizure [Unknown]
  - Restlessness [Unknown]
  - Agitation [Unknown]
